FAERS Safety Report 17444801 (Version 1)
Quarter: 2020Q1

REPORT INFORMATION
  Report Type: Spontaneous
  Country: PT (occurrence: PT)
  Receive Date: 20200221
  Receipt Date: 20200221
  Transmission Date: 20200409
  Serious: Yes (Other)
  Sender: FDA-Public Use
  Company Number: PT-TEVA-2020-PT-1189241

PATIENT
  Age: 64 Year

DRUGS (9)
  1. PANTOPRAZOLE [Concomitant]
     Active Substance: PANTOPRAZOLE
     Dosage: 40MG FASTING
  2. AMIODARONE [Concomitant]
     Active Substance: AMIODARONE
     Dosage: 1CP / DAY
  3. BROMAZEPAM [Concomitant]
     Active Substance: BROMAZEPAM
     Dosage: 1 CP AT BEDTIME
  4. LEVOTHYROXINE SODIUM. [Concomitant]
     Active Substance: LEVOTHYROXINE SODIUM
     Indication: HYPOTHYROIDISM
     Dosage: .1 MILLIGRAM DAILY; 0.1MG FOR BREAKFAST
  5. ALPRAZOLAM. [Concomitant]
     Active Substance: ALPRAZOLAM
     Dosage: 1 CP FOR BREAKFAST AND 1 CP FOR LUNCH
  6. FUROSEMIDE. [Concomitant]
     Active Substance: FUROSEMIDE
     Dosage: 1/2 CP AT BREAKFAST
  7. IRBESARTAN. [Concomitant]
     Active Substance: IRBESARTAN
  8. ELIQUIS [Concomitant]
     Active Substance: APIXABAN
     Dosage: 1 CP FOR BREAKFAST AND 1 CP FOR DINNER
  9. ALENDRONIC ACID [Suspect]
     Active Substance: ALENDRONIC ACID
     Dosage: 1 CP / WEEK
     Route: 048
     Dates: start: 20200120, end: 20200120

REACTIONS (2)
  - Myalgia [Recovered/Resolved]
  - Cough [Recovered/Resolved]

NARRATIVE: CASE EVENT DATE: 20200120
